FAERS Safety Report 26007833 (Version 1)
Quarter: 2025Q4

REPORT INFORMATION
  Report Type: Spontaneous
  Country: EU (occurrence: EU)
  Receive Date: 20251106
  Receipt Date: 20251106
  Transmission Date: 20260117
  Serious: Yes (Other)
  Sender: MYLAN
  Company Number: EU-ABBVIE-6071931

PATIENT
  Age: 64 Year
  Sex: Male

DRUGS (12)
  1. XALATAN [Suspect]
     Active Substance: LATANOPROST
     Indication: Glaucoma
     Dosage: DURATION TEXT: 5 YEARS
     Route: 065
  2. XALATAN [Suspect]
     Active Substance: LATANOPROST
     Dosage: DURATION TEXT: 5 YEARS
  3. XALATAN [Suspect]
     Active Substance: LATANOPROST
     Dosage: DURATION TEXT: 5 YEARS
  4. XALATAN [Suspect]
     Active Substance: LATANOPROST
     Dosage: DURATION TEXT: 5 YEARS
     Route: 065
  5. XALATAN [Suspect]
     Active Substance: LATANOPROST
     Dosage: UNK
     Route: 065
  6. XALATAN [Suspect]
     Active Substance: LATANOPROST
     Dosage: UNK
  7. XALATAN [Suspect]
     Active Substance: LATANOPROST
     Dosage: UNK
  8. XALATAN [Suspect]
     Active Substance: LATANOPROST
     Dosage: UNK
     Route: 065
  9. COMBIGAN [Suspect]
     Active Substance: BRIMONIDINE TARTRATE\TIMOLOL MALEATE
     Indication: Glaucoma
     Dosage: 2MG/ML;TIMOLOL 6.8MG/ML SOL.PATIENT ROA: OPHTHALMIC,
     Dates: start: 2025, end: 2025
  10. COMBIGAN [Suspect]
     Active Substance: BRIMONIDINE TARTRATE\TIMOLOL MALEATE
     Indication: Vision blurred
     Dosage: 2MG/ML;TIMOLOL 6.8MG/ML SOL.PATIENT ROA: OPHTHALMIC,
     Route: 047
     Dates: start: 2025, end: 2025
  11. COMBIGAN [Suspect]
     Active Substance: BRIMONIDINE TARTRATE\TIMOLOL MALEATE
     Dosage: 2MG/ML;TIMOLOL 6.8MG/ML SOL.PATIENT ROA: OPHTHALMIC,
     Route: 047
     Dates: start: 2025, end: 2025
  12. COMBIGAN [Suspect]
     Active Substance: BRIMONIDINE TARTRATE\TIMOLOL MALEATE
     Dosage: 2MG/ML;TIMOLOL 6.8MG/ML SOL.PATIENT ROA: OPHTHALMIC,
     Dates: start: 2025, end: 2025

REACTIONS (7)
  - Optic nerve disorder [Not Recovered/Not Resolved]
  - Anxiety [Not Recovered/Not Resolved]
  - Dry eye [Not Recovered/Not Resolved]
  - Eye irritation [Not Recovered/Not Resolved]
  - Photophobia [Not Recovered/Not Resolved]
  - Vision blurred [Not Recovered/Not Resolved]
  - Contraindicated product prescribed [Unknown]

NARRATIVE: CASE EVENT DATE: 20250101
